FAERS Safety Report 11380101 (Version 1)
Quarter: 2015Q3

REPORT INFORMATION
  Report Type: Spontaneous
  Country: US (occurrence: US)
  Receive Date: 20150814
  Receipt Date: 20150814
  Transmission Date: 20151125
  Serious: No
  Sender: FDA-Public Use
  Company Number: US-BIOGENIDEC-2015BI112078

PATIENT
  Sex: Male

DRUGS (1)
  1. AVONEX [Suspect]
     Active Substance: INTERFERON BETA-1A
     Indication: MULTIPLE SCLEROSIS
     Route: 030
     Dates: start: 19970515

REACTIONS (5)
  - Multiple sclerosis relapse [Unknown]
  - Rhinorrhoea [Unknown]
  - Fatigue [Unknown]
  - Gait disturbance [Unknown]
  - Confusional state [Unknown]
